FAERS Safety Report 9090134 (Version 2)
Quarter: 2013Q1

REPORT INFORMATION
  Report Type: Spontaneous
  Country: US (occurrence: US)
  Receive Date: 20130201
  Receipt Date: 20130306
  Transmission Date: 20140127
  Serious: Yes (Hospitalization)
  Sender: FDA-Public Use
  Company Number: US-GILEAD-2013-0068727

PATIENT
  Age: 67 Year
  Sex: Male

DRUGS (3)
  1. LETAIRIS [Suspect]
     Indication: PULMONARY HYPERTENSION
     Dosage: 5 MG, UNK
     Dates: start: 20130110
  2. LASIX                              /00032601/ [Concomitant]
     Indication: PULMONARY HYPERTENSION
  3. LASIX                              /00032601/ [Concomitant]
     Indication: CARDIAC FAILURE CONGESTIVE

REACTIONS (5)
  - Respiratory failure [Unknown]
  - Pulmonary hypertension [Unknown]
  - Dyspnoea [Unknown]
  - Fluid retention [Unknown]
  - Pulmonary oedema [Unknown]
